FAERS Safety Report 25061740 (Version 6)
Quarter: 2025Q2

REPORT INFORMATION
  Report Type: Report from Study
  Country: CN (occurrence: CN)
  Receive Date: 20250311
  Receipt Date: 20250605
  Transmission Date: 20250717
  Serious: Yes (Hospitalization, Other)
  Sender: ROCHE
  Company Number: CN-ROCHE-10000221856

PATIENT
  Age: 59 Year
  Sex: Female

DRUGS (3)
  1. KADCYLA [Suspect]
     Active Substance: ADO-TRASTUZUMAB EMTANSINE
     Indication: Breast cancer metastatic
     Dosage: MOST RECENT DOSE (220 MG) RECEIVED ON 13/JAN/2025 PRIOR TO AE.
     Route: 042
     Dates: start: 20240909
  2. LEUCOGEN [Concomitant]
     Active Substance: LEUCOGEN
     Indication: Mouth haemorrhage
     Route: 048
     Dates: start: 20250103
  3. LEUCOGEN [Concomitant]
     Active Substance: LEUCOGEN
     Indication: Epistaxis

REACTIONS (3)
  - Thrombasthenia [Recovered/Resolved]
  - Mouth haemorrhage [Recovered/Resolved]
  - Epistaxis [Recovered/Resolved]

NARRATIVE: CASE EVENT DATE: 20250124
